FAERS Safety Report 17461522 (Version 1)
Quarter: 2020Q1

REPORT INFORMATION
  Report Type: Spontaneous
  Country: US (occurrence: US)
  Receive Date: 20200213
  Receipt Date: 20200213
  Transmission Date: 20200409
  Serious: Yes (Other)
  Sender: FDA-Public Use
  Company Number: None

PATIENT
  Age: 44 Year
  Sex: Male
  Weight: 117.93 kg

DRUGS (1)
  1. BENZONATATE 100MG CAPSULES GENERIC FOR TESALON 100MG CAPSULES [Suspect]
     Active Substance: BENZONATATE
     Indication: COUGH
     Dosage: ?          QUANTITY:3 TIME DAILY;?
     Route: 048
     Dates: start: 20200203, end: 20200204

REACTIONS (2)
  - Dizziness [None]
  - Hallucination, visual [None]

NARRATIVE: CASE EVENT DATE: 20200203
